FAERS Safety Report 13483318 (Version 2)
Quarter: 2017Q2

REPORT INFORMATION
  Report Type: Spontaneous
  Country: CA (occurrence: CA)
  Receive Date: 20170424
  Receipt Date: 20170619
  Transmission Date: 20170830
  Serious: Yes (Other)
  Sender: FDA-Public Use
  Company Number: CA-JUBILANT PHARMA LTD-2017CA000168

PATIENT
  Age: 47 Year
  Sex: Female

DRUGS (4)
  1. TECHNETIUM TC 99M [Suspect]
     Active Substance: TECHNETIUM TC-99M
     Indication: CARDIAC STRESS TEST
     Dosage: 300 MBQ, SINGLE DOSE
     Route: 051
     Dates: start: 20161013, end: 20161013
  2. PERCOCET                           /00446701/ [Suspect]
     Active Substance: ACETAMINOPHEN\OXYCODONE HYDROCHLORIDE\OXYCODONE TEREPHTHALATE
     Indication: PRODUCT USED FOR UNKNOWN INDICATION
     Dosage: 2 TABLETS
     Route: 048
     Dates: start: 20161012
  3. TETRAKIS (2-METHOXYISOBUTYL ISONITRILE) COPPER (I) TETRAFLUOROBORATE [Suspect]
     Active Substance: TETRAKIS(2-METHOXYISOBUTYLISOCYANIDE)COPPER(I) TETRAFLUOROBORATE
     Indication: CARDIAC STRESS TEST
     Dosage: UNK UNK, SINGLE
     Route: 051
     Dates: start: 20161013, end: 20161013
  4. FENTANYL. [Suspect]
     Active Substance: FENTANYL
     Indication: PRODUCT USED FOR UNKNOWN INDICATION
     Dosage: UNK
     Route: 062
     Dates: end: 20161012

REACTIONS (3)
  - Malaise [Recovered/Resolved]
  - Oxygen saturation decreased [Recovered/Resolved]
  - Somnolence [Recovered/Resolved]

NARRATIVE: CASE EVENT DATE: 20161013
